FAERS Safety Report 7425876-5 (Version None)
Quarter: 2011Q2

REPORT INFORMATION
  Report Type: 
  Country: None (occurrence: None)
  Receive Date: 20110420
  Receipt Date: 20110418
  Transmission Date: 20111010
  Serious: Yes (Other)
  Sender: FDA-Public Use
  Company Number: US-ROCHE-751882

PATIENT
  Sex: Male
  Weight: 65.8 kg

DRUGS (4)
  1. ACCUTANE [Suspect]
     Route: 065
     Dates: start: 19960201, end: 19960606
  2. ACCUTANE [Suspect]
     Route: 065
     Dates: start: 19950928
  3. ACCUTANE [Suspect]
     Route: 065
     Dates: start: 19940217, end: 19940804
  4. ACCUTANE [Suspect]
     Indication: ACNE
     Route: 065
     Dates: start: 19930301

REACTIONS (9)
  - INFLAMMATORY BOWEL DISEASE [None]
  - CROHN'S DISEASE [None]
  - OSTEOPOROSIS [None]
  - BLOOD CHOLESTEROL INCREASED [None]
  - BLOOD TRIGLYCERIDES INCREASED [None]
  - DEPRESSION [None]
  - HAEMORRHOIDS [None]
  - ANXIETY [None]
  - COLITIS ULCERATIVE [None]
